FAERS Safety Report 4771655-7 (Version None)
Quarter: 2005Q3

REPORT INFORMATION
  Report Type: 
  Country: None (occurrence: None)
  Receive Date: 20050914
  Receipt Date: 20050830
  Transmission Date: 20060218
  Serious: Yes (Hospitalization, Disabling)
  Sender: FDA-Public Use
  Company Number: 401137

PATIENT
  Age: 15 Year
  Sex: Male
  Weight: 76.7 kg

DRUGS (1)
  1. ACCUTANE [Suspect]
     Indication: ACNE CYSTIC
     Dosage: ORAL
     Route: 048
     Dates: start: 19910401, end: 19910731

REACTIONS (70)
  - ABDOMINAL ABSCESS [None]
  - ABSCESS [None]
  - ANOREXIA [None]
  - APPENDICEAL ABSCESS [None]
  - APPENDICECTOMY [None]
  - ARTHRALGIA [None]
  - BACK PAIN [None]
  - BLEPHARITIS [None]
  - BULIMIA NERVOSA [None]
  - CHAPPED LIPS [None]
  - CHRONIC FATIGUE SYNDROME [None]
  - COLITIS [None]
  - COLONIC FISTULA [None]
  - COMPUTERISED TOMOGRAM ABNORMAL [None]
  - COUGH [None]
  - CROHN'S DISEASE [None]
  - CYST [None]
  - DEPRESSION [None]
  - DERMATITIS [None]
  - DIARRHOEA [None]
  - DIVERTICULUM [None]
  - DIZZINESS [None]
  - DUODENITIS [None]
  - DYSURIA [None]
  - FISTULA [None]
  - FLATULENCE [None]
  - FOLLICULITIS [None]
  - GASTRO-INTESTINAL FISTULA [None]
  - GASTROENTERITIS [None]
  - GASTROOESOPHAGEAL REFLUX DISEASE [None]
  - INSOMNIA [None]
  - INTERNAL INJURY [None]
  - INTESTINAL HAEMORRHAGE [None]
  - INTESTINAL OBSTRUCTION [None]
  - INTESTINAL STENOSIS [None]
  - IRRITABLE BOWEL SYNDROME [None]
  - LETHARGY [None]
  - LIGAMENT CALCIFICATION [None]
  - LYMPHADENOPATHY [None]
  - MUSCLE SPASMS [None]
  - MUSCULOSKELETAL STIFFNESS [None]
  - MYALGIA [None]
  - NIGHT SWEATS [None]
  - OESOPHAGEAL PAIN [None]
  - OESOPHAGITIS [None]
  - ORTHOSTATIC HYPOTENSION [None]
  - OTITIS MEDIA [None]
  - PAIN [None]
  - PELVIC ABSCESS [None]
  - PEPTIC ULCER [None]
  - PERIANAL FUNGAL INFECTION [None]
  - PHARYNGEAL LESION [None]
  - PHARYNGOLARYNGEAL PAIN [None]
  - PROCTALGIA [None]
  - RECTAL HAEMORRHAGE [None]
  - REPETITIVE STRAIN INJURY [None]
  - ROSAI-DORFMAN SYNDROME [None]
  - SINUSITIS [None]
  - SOMNOLENCE [None]
  - SUICIDAL IDEATION [None]
  - SURGERY [None]
  - SYNCOPE [None]
  - TENDON CALCIFICATION [None]
  - TENSION HEADACHE [None]
  - ULCER [None]
  - UPPER RESPIRATORY TRACT INFECTION [None]
  - UTERINE LEIOMYOMA [None]
  - VIRAEMIA [None]
  - VIRAL INFECTION [None]
  - WEIGHT DECREASED [None]
